FAERS Safety Report 10244975 (Version 1)
Quarter: 2014Q2

REPORT INFORMATION
  Report Type: Spontaneous
  Country: US (occurrence: US)
  Receive Date: 20140618
  Receipt Date: 20140618
  Transmission Date: 20141212
  Serious: No
  Sender: FDA-Public Use
  Company Number: US-GALDERMA-US14000978

PATIENT
  Age: 62 Year
  Sex: Female

DRUGS (9)
  1. MIRVASO (BRIMONIDINE) TOPICAL GEL, 0.33% [Suspect]
     Indication: ROSACEA
     Dosage: 0.33%
     Route: 061
     Dates: start: 20140225
  2. GLYCOLIC 10% MOISTURIZING CLEANSER [Concomitant]
     Indication: THERAPEUTIC SKIN CARE TOPICAL
     Dosage: 10%
     Route: 061
  3. CERAVE MOISTURIZER [Concomitant]
     Indication: DRY SKIN PROPHYLAXIS
     Route: 061
  4. METRONIDAZOLE 0.75% CREAM BY FOUGERA [Concomitant]
     Indication: RASH
     Dosage: 0.75%
     Route: 061
  5. ATENOLOL [Concomitant]
     Dosage: 50/25 ONE HALF DAILY
     Route: 048
  6. LIPITOR [Concomitant]
     Dosage: 20 MG
     Route: 048
  7. CARAFATE [Concomitant]
     Dosage: 1 GRAM
     Route: 048
  8. VITAMIN D [Concomitant]
     Dosage: 1000 IU
     Route: 048
  9. B-12 [Concomitant]

REACTIONS (3)
  - Rebound effect [Recovered/Resolved]
  - Flushing [Recovered/Resolved]
  - Erythema [Recovered/Resolved]
